FAERS Safety Report 6808030-7 (Version None)
Quarter: 2010Q2

REPORT INFORMATION
  Report Type: 
  Country: None (occurrence: None)
  Receive Date: 20100629
  Receipt Date: 20090420
  Transmission Date: 20101027
  Serious: No
  Sender: FDA-Public Use
  Company Number: US-PFIZER INC-2009182796

PATIENT
  Sex: Male

DRUGS (7)
  1. TIKOSYN [Suspect]
     Indication: ARRHYTHMIA
     Dosage: 500 UG, 2X/DAY
     Route: 048
     Dates: start: 20090201
  2. CARVEDILOL [Concomitant]
     Dosage: 3.125 MG, UNK
  3. PAROXETINE [Concomitant]
     Dosage: 20 MG, UNK
  4. FUROSEMIDE [Concomitant]
     Dosage: 40 MG, UNK
  5. LISINOPRIL [Concomitant]
     Dosage: 10 MG, UNK
  6. SPIRONOLACTONE [Concomitant]
     Dosage: 25 MG, UNK
  7. ALPRAZOLAM [Concomitant]
     Dosage: 0.5 MG, AS NEEDED

REACTIONS (1)
  - GINGIVAL RECESSION [None]
